FAERS Safety Report 5019426-0 (Version None)
Quarter: 2006Q2

REPORT INFORMATION
  Report Type: 
  Country: None (occurrence: None)
  Receive Date: 20060531
  Receipt Date: 20060515
  Transmission Date: 20061013
  Serious: Yes (Hospitalization)
  Sender: FDA-Public Use
  Company Number: 110596ISR

PATIENT
  Age: 53 Year
  Sex: Male

DRUGS (3)
  1. TICLOPIDINE [Suspect]
     Dosage: 500 MILLIGRAM, ORAL
     Route: 048
     Dates: start: 20060320, end: 20060413
  2. RAMIPRIL [Suspect]
     Dosage: 2.5 MILLIGRAM, ORAL
     Route: 048
     Dates: start: 20060310, end: 20060413
  3. PRAVASTATIN SODIUM [Suspect]
     Dosage: 10 MILLIGRAM, ORAL
     Route: 048
     Dates: start: 20060310, end: 20060413

REACTIONS (1)
  - HEPATITIS CHOLESTATIC [None]
